FAERS Safety Report 22021550 (Version 2)
Quarter: 2023Q2

REPORT INFORMATION
  Report Type: Report from Study
  Country: US (occurrence: US)
  Receive Date: 20230222
  Receipt Date: 20230419
  Transmission Date: 20230721
  Serious: Yes (Other)
  Sender: FDA-Public Use
  Company Number: US-AMRYT PHARMACEUTICALS DAC-AEGR006281

PATIENT
  Age: 40 Year
  Sex: Female
  Weight: 61.678 kg

DRUGS (34)
  1. METRELEPTIN [Suspect]
     Active Substance: METRELEPTIN
     Indication: Familial partial lipodystrophy
     Dosage: 7.5 MG, QD
     Route: 058
     Dates: start: 20200722, end: 20230113
  2. METRELEPTIN [Suspect]
     Active Substance: METRELEPTIN
     Dosage: 10 MILLIGRAM, QD
     Dates: start: 20230113
  3. CHOLECALCIFEROL [Concomitant]
     Active Substance: CHOLECALCIFEROL
     Indication: Vitamin D deficiency
     Dosage: 1250 UG, WEEKLY
     Route: 048
     Dates: end: 20200924
  4. CHOLECALCIFEROL [Concomitant]
     Active Substance: CHOLECALCIFEROL
     Dosage: 1000 INTERNATIONAL UNIT, QD
     Route: 048
     Dates: start: 20200925, end: 20201211
  5. CHOLECALCIFEROL [Concomitant]
     Active Substance: CHOLECALCIFEROL
     Dosage: 1000 IU INTERNATIONAL UNIT(S), Q WEEKLY
     Route: 048
     Dates: start: 20201214
  6. CLONAZEPAM [Concomitant]
     Active Substance: CLONAZEPAM
     Indication: Anxiety
     Dosage: 0.5 MILLIGRAM, TID
     Route: 048
     Dates: end: 20201026
  7. CLONAZEPAM [Concomitant]
     Active Substance: CLONAZEPAM
     Dosage: 0.5 MILLIGRAM, BID
     Route: 048
     Dates: start: 20201027
  8. DEXLANSOPRAZOLE [Concomitant]
     Active Substance: DEXLANSOPRAZOLE
     Indication: Gastrooesophageal reflux disease
     Dosage: 60 MILLIGRAM, QD
     Route: 048
     Dates: end: 20201020
  9. DEXLANSOPRAZOLE [Concomitant]
     Active Substance: DEXLANSOPRAZOLE
     Dosage: 30 MILLIGRAM, QD
     Route: 048
     Dates: start: 20201027, end: 20210131
  10. DEXLANSOPRAZOLE [Concomitant]
     Active Substance: DEXLANSOPRAZOLE
     Dosage: 60 MILLIGRAM, QD
     Route: 048
     Dates: start: 20210201
  11. INSULIN LISPRO [Concomitant]
     Active Substance: INSULIN LISPRO
     Indication: Diabetes mellitus
     Dosage: 20 IU INTERNATIONAL UNIT(S) QID
     Route: 058
     Dates: end: 202006
  12. INSULIN LISPRO [Concomitant]
     Active Substance: INSULIN LISPRO
     Dosage: 0.9 IU INTERNATIONAL UNIT(S)/HR, CONTINOUS PUMP
     Route: 058
     Dates: start: 202006
  13. LEVOTHYROXINE [Concomitant]
     Active Substance: LEVOTHYROXINE
     Indication: Hypothyroidism
     Dosage: 150 UG QD
     Route: 048
     Dates: end: 20201027
  14. LEVOTHYROXINE [Concomitant]
     Active Substance: LEVOTHYROXINE
     Dosage: 125 UG, QD
     Route: 048
     Dates: start: 20201028, end: 20201122
  15. LEVOTHYROXINE [Concomitant]
     Active Substance: LEVOTHYROXINE
     Dosage: 112 UG, QD
     Route: 048
     Dates: start: 20201123
  16. LISINOPRIL [Concomitant]
     Active Substance: LISINOPRIL
     Indication: Product used for unknown indication
     Dosage: 10 MILLIGRAM, QD
     Route: 048
     Dates: end: 20201027
  17. LISINOPRIL [Concomitant]
     Active Substance: LISINOPRIL
     Dosage: 5 MILLIGRAM, QD
     Route: 048
     Dates: start: 20210727
  18. ONDANSETRON [Concomitant]
     Active Substance: ONDANSETRON
     Indication: Gastrooesophageal reflux disease
     Dosage: 4 MILLIGRAM, PRN
     Route: 060
  19. ONDANSETRON [Concomitant]
     Active Substance: ONDANSETRON
     Indication: Ileus
     Dosage: 4 MILLIGRAM, SINGLE
     Route: 042
     Dates: start: 20200917, end: 20200917
  20. ONDANSETRON [Concomitant]
     Active Substance: ONDANSETRON
     Dosage: 4 MILLIGRAM, Q 4HRS PRN
     Route: 042
     Dates: start: 20201024, end: 20201026
  21. ONDANSETRON [Concomitant]
     Active Substance: ONDANSETRON
     Dosage: 4 MILLIGRAM, SINGLE
     Route: 042
     Dates: start: 20210212, end: 20210212
  22. TIZANIDINE [Concomitant]
     Active Substance: TIZANIDINE
     Indication: Muscle relaxant therapy
     Dosage: 2 MILLIGRAM, QPM PRN
     Route: 048
     Dates: end: 20201026
  23. TIZANIDINE [Concomitant]
     Active Substance: TIZANIDINE
     Dosage: 6 MILLIGRAM, PRN Q6HRS
     Route: 048
     Dates: start: 20201027
  24. ZENPEP [Concomitant]
     Active Substance: PANCRELIPASE AMYLASE\PANCRELIPASE LIPASE\PANCRELIPASE PROTEASE
     Indication: Pancreatectomy
     Dosage: 40, 000-126,000, 168,000 IU INTERNATIONAL UNIT(S), TID
     Route: 048
  25. AMLODIPINE [Concomitant]
     Active Substance: AMLODIPINE BESYLATE
     Indication: Hypertension
     Dosage: 10 MILLIGRAM, QD
     Route: 048
     Dates: start: 20201025
  26. BUPRENORPHINE AND NALOXONE [Concomitant]
     Active Substance: BUPRENORPHINE HYDROCHLORIDE\NALOXONE HYDROCHLORIDE
     Indication: Pain
     Dosage: 1 APPLICATION (2.0-5 MG), BID PRN
     Dates: start: 20201017, end: 20201022
  27. BUPRENORPHINE AND NALOXONE [Concomitant]
     Active Substance: BUPRENORPHINE HYDROCHLORIDE\NALOXONE HYDROCHLORIDE
     Dosage: 1 APPLICATON (8-2MG)
     Route: 002
     Dates: start: 20201020, end: 20201021
  28. BUPRENORPHINE AND NALOXONE [Concomitant]
     Active Substance: BUPRENORPHINE HYDROCHLORIDE\NALOXONE HYDROCHLORIDE
     Dosage: 1 APPLICATION (12-3MG), BID, PRN
     Route: 002
     Dates: start: 20201022
  29. PAMELOR [Concomitant]
     Active Substance: NORTRIPTYLINE HYDROCHLORIDE
     Indication: Depression
     Dosage: 10 MILLIGRAM, QD
     Route: 048
     Dates: start: 20201016, end: 20201019
  30. PAMELOR [Concomitant]
     Active Substance: NORTRIPTYLINE HYDROCHLORIDE
     Dosage: 25 MILLIGRAM, QD
     Route: 048
     Dates: start: 20201024
  31. PANTOPRAZOLE SODIUM [Concomitant]
     Active Substance: PANTOPRAZOLE SODIUM
     Indication: Gastrooesophageal reflux disease
     Dosage: 20 MILLIGRAM
  32. PANTOPRAZOLE SODIUM [Concomitant]
     Active Substance: PANTOPRAZOLE SODIUM
     Dosage: 40 MILLIGRAM, BID
     Route: 048
     Dates: start: 20201001, end: 20201027
  33. PANTOPRAZOLE SODIUM [Concomitant]
     Active Substance: PANTOPRAZOLE SODIUM
     Dosage: 40 MILLIGRAM, BID
     Route: 042
     Dates: start: 20200908, end: 20200908
  34. SUCRALFATE [Concomitant]
     Active Substance: SUCRALFATE
     Indication: Ileus
     Dosage: 1 GRAM, TID
     Route: 048
     Dates: start: 20201015

REACTIONS (2)
  - Maternal exposure during pregnancy [Unknown]
  - Off label use [Unknown]

NARRATIVE: CASE EVENT DATE: 20230130
